FAERS Safety Report 8541637-8 (Version None)
Quarter: 2012Q3

REPORT INFORMATION
  Report Type: 
  Country: None (occurrence: None)
  Receive Date: 20120726
  Receipt Date: 20120718
  Transmission Date: 20120928
  Serious: Yes (Hospitalization, Congenital Anomaly)
  Sender: FDA-Public Use
  Company Number: US-GLAXOSMITHKLINE-A0976622A

PATIENT
  Sex: Male
  Weight: 2.7 kg

DRUGS (5)
  1. LEVOXYL [Concomitant]
  2. KLONOPIN [Concomitant]
     Route: 064
     Dates: start: 19960828
  3. LITHIUM CARBONATE [Concomitant]
  4. PAXIL [Suspect]
     Indication: ANXIETY
     Dosage: 20MG PER DAY
     Route: 064
     Dates: start: 19960913
  5. MACROBID [Concomitant]

REACTIONS (2)
  - TALIPES [None]
  - FOETAL EXPOSURE DURING PREGNANCY [None]
